FAERS Safety Report 5843976-8 (Version None)
Quarter: 2008Q3

REPORT INFORMATION
  Report Type: 
  Country: None (occurrence: None)
  Receive Date: 20080813
  Receipt Date: 20080804
  Transmission Date: 20090109
  Serious: Yes (Hospitalization)
  Sender: FDA-Public Use
  Company Number: AU-ROCHE-579302

PATIENT
  Age: 41 Year
  Sex: Female

DRUGS (8)
  1. CEFTRIAXONE SODIUM [Suspect]
     Route: 030
     Dates: start: 20080422, end: 20080426
  2. CEFTRIAXONE SODIUM [Suspect]
     Route: 030
  3. DILANTIN [Concomitant]
     Indication: EPILEPSY
  4. FOLIC ACID [Concomitant]
     Route: 048
  5. LOVAN [Concomitant]
     Indication: DEPRESSION
     Route: 048
  6. OROXINE [Concomitant]
     Indication: MENOPAUSAL SYMPTOMS
     Route: 048
  7. SABRIL [Concomitant]
     Indication: EPILEPSY
     Route: 048
  8. TRAMAL [Concomitant]
     Indication: PAIN
     Route: 048

REACTIONS (3)
  - ANAPHYLACTIC REACTION [None]
  - DYSPHAGIA [None]
  - TONGUE OEDEMA [None]
